FAERS Safety Report 24880929 (Version 2)
Quarter: 2025Q1

REPORT INFORMATION
  Report Type: Spontaneous
  Country: GB (occurrence: GB)
  Receive Date: 20250124
  Receipt Date: 20250131
  Transmission Date: 20250408
  Serious: Yes (Death)
  Sender: RANBAXY
  Company Number: GB-SUN PHARMACEUTICAL INDUSTRIES LTD-2025RR-489842

PATIENT
  Sex: Female

DRUGS (3)
  1. LENALIDOMIDE [Suspect]
     Active Substance: LENALIDOMIDE
     Indication: Plasma cell myeloma
     Route: 065
     Dates: start: 20240105
  2. LENALIDOMIDE [Suspect]
     Active Substance: LENALIDOMIDE
     Route: 065
     Dates: start: 20240216
  3. LENALIDOMIDE [Suspect]
     Active Substance: LENALIDOMIDE
     Route: 065
     Dates: start: 20240321

REACTIONS (1)
  - Death [Fatal]
